FAERS Safety Report 7944106 (Version 2)
Quarter: 2013Q4

REPORT INFORMATION
  Report Type: Spontaneous
  Country: US (occurrence: US)
  Receive Date: 20110513
  Receipt Date: 20131217
  Transmission Date: 20140711
  Serious: Yes (Hospitalization, Other)
  Sender: FDA-Public Use
  Company Number: US-BAYER-2010-004362

PATIENT
  Age: 20 Year
  Sex: Female
  Weight: 66 kg

DRUGS (2)
  1. YAZ [Suspect]
     Indication: CONTRACEPTION
     Dosage: UNK UNK, QD
     Route: 048
     Dates: start: 200810, end: 200812
  2. MOTRIN [Concomitant]
     Indication: COSTOCHONDRITIS

REACTIONS (4)
  - Cholecystitis acute [None]
  - Cholangitis [None]
  - Gallbladder disorder [None]
  - Pain [None]
